FAERS Safety Report 19071266 (Version 2)
Quarter: 2021Q2

REPORT INFORMATION
  Report Type: Spontaneous
  Country: MA (occurrence: MA)
  Receive Date: 20210330
  Receipt Date: 20210405
  Transmission Date: 20210717
  Serious: Yes (Other)
  Sender: FDA-Public Use
  Company Number: MA-SUN PHARMACEUTICAL INDUSTRIES LTD-2021RR-288249

PATIENT
  Age: 46 Year
  Sex: Male

DRUGS (3)
  1. AZITHROMYCIN ANHYDROUS. [Suspect]
     Active Substance: AZITHROMYCIN ANHYDROUS
     Indication: COVID-19
     Dosage: UNK
     Route: 065
  2. CHLOROQUINE. [Suspect]
     Active Substance: CHLOROQUINE
     Indication: COVID-19
     Dosage: UNK
     Route: 065
  3. VORTIOXETINE. [Concomitant]
     Active Substance: VORTIOXETINE
     Indication: DEPRESSION
     Dosage: UNK
     Route: 065
     Dates: start: 201911

REACTIONS (3)
  - Electrocardiogram QT prolonged [Unknown]
  - Off label use [Unknown]
  - Acute psychosis [Recovered/Resolved]
